FAERS Safety Report 8843051 (Version 2)
Quarter: 2012Q4

REPORT INFORMATION
  Report Type: 
  Country: BR (occurrence: BR)
  Receive Date: 20121016
  Receipt Date: 20121022
  Transmission Date: 20130627
  Serious: Yes (Other)
  Sender: FDA-Public Use
  Company Number: BR-GLAXOSMITHKLINE-B0837686A

PATIENT
  Age: 39 Year
  Sex: Female

DRUGS (4)
  1. CLENIL [Suspect]
     Indication: ASTHMA
     Dosage: 1500MCG Per day
     Route: 055
     Dates: start: 20120918, end: 20120920
  2. BECLOMETASONE DIPROPIONATE [Concomitant]
  3. CLENIL [Concomitant]
  4. ALCOHOL [Concomitant]

REACTIONS (3)
  - Dyspnoea [Recovered/Resolved]
  - Drug ineffective [Recovered/Resolved]
  - Asphyxia [Recovered/Resolved]
